FAERS Safety Report 12647955 (Version 1)
Quarter: 2016Q3

REPORT INFORMATION
  Report Type: Spontaneous
  Country: CA (occurrence: CA)
  Receive Date: 20160812
  Receipt Date: 20160812
  Transmission Date: 20161109
  Serious: Yes (Other)
  Sender: FDA-Public Use
  Company Number: CA-TEVA-684301ACC

PATIENT
  Age: 56 Year
  Sex: Female

DRUGS (4)
  1. LIPITOR [Concomitant]
     Active Substance: ATORVASTATIN CALCIUM
  2. DULOXETINE. [Concomitant]
     Active Substance: DULOXETINE
  3. TEVA-CEPHALEXIN [Suspect]
     Active Substance: CEPHALEXIN
     Indication: PRODUCT USED FOR UNKNOWN INDICATION
     Dosage: 2000 MILLIGRAM DAILY; 500 MG TABLETS, 1 TABLET FOUR TIMES A DAY
     Dates: start: 20160802, end: 20160802
  4. AMLODIPINE [Concomitant]
     Active Substance: AMLODIPINE BESYLATE

REACTIONS (5)
  - Lip swelling [Recovered/Resolved]
  - Swelling face [Recovered/Resolved]
  - Product substitution issue [Unknown]
  - Dyspnoea [Recovered/Resolved]
  - Product substitution issue [None]

NARRATIVE: CASE EVENT DATE: 20160802
